FAERS Safety Report 9034703 (Version 1)
Quarter: 2013Q1

REPORT INFORMATION
  Report Type: Spontaneous
  Country: US (occurrence: None)
  Receive Date: 20130116
  Receipt Date: 20130116
  Transmission Date: 20140127
  Serious: Yes (Other)
  Sender: FDA-Public Use
  Company Number: None

PATIENT
  Age: 46 Year
  Sex: Female
  Weight: 56.7 kg

DRUGS (1)
  1. FLUTICASONE PROPIONATE [Suspect]
     Dosage: USE 2 SPRAYS NASALLY ONCE A DAY AS DIRECTED
     Dates: start: 20130102, end: 20130110

REACTIONS (6)
  - Product odour abnormal [None]
  - Epistaxis [None]
  - Burning sensation [None]
  - Drug ineffective [None]
  - Sinus headache [None]
  - Blood pH abnormal [None]
